FAERS Safety Report 13778535 (Version 1)
Quarter: 2017Q3

REPORT INFORMATION
  Report Type: Spontaneous
  Country: US (occurrence: US)
  Receive Date: 20170721
  Receipt Date: 20170721
  Transmission Date: 20171127
  Serious: Yes (Other)
  Sender: FDA-Public Use
  Company Number: US-TEVA-788975ACC

PATIENT
  Sex: Female

DRUGS (1)
  1. NADOLOL. [Suspect]
     Active Substance: NADOLOL
     Indication: CARDIAC DISORDER
     Dates: start: 20150901, end: 20151231

REACTIONS (3)
  - Rash pruritic [Unknown]
  - Herpes zoster [Unknown]
  - Rash morbilliform [Unknown]
